FAERS Safety Report 6523521-4 (Version None)
Quarter: 2009Q4

REPORT INFORMATION
  Report Type: 
  Country: None (occurrence: None)
  Receive Date: 20091231
  Receipt Date: 20091221
  Transmission Date: 20100525
  Serious: Yes (Hospitalization, Other)
  Sender: FDA-Public Use
  Company Number: PHHY2009NL58010

PATIENT
  Sex: Female

DRUGS (3)
  1. DIOVAN HCT [Suspect]
     Indication: HYPERTENSION
     Dosage: UNK
     Route: 048
     Dates: start: 20091119
  2. FLUTICASONE [Concomitant]
  3. SIMVASTATIN [Concomitant]
     Dates: start: 20091119

REACTIONS (9)
  - BALANCE DISORDER [None]
  - CONCUSSION [None]
  - DISLOCATION OF VERTEBRA [None]
  - FACIAL BONES FRACTURE [None]
  - FALL [None]
  - LOSS OF CONSCIOUSNESS [None]
  - ORTHOSTATIC HYPOTENSION [None]
  - SYNCOPE [None]
  - VISION BLURRED [None]
